FAERS Safety Report 8125862-6 (Version None)
Quarter: 2012Q1

REPORT INFORMATION
  Report Type: 
  Country: None (occurrence: None)
  Receive Date: 20120209
  Receipt Date: 20120127
  Transmission Date: 20120608
  Serious: Yes (Hospitalization)
  Sender: FDA-Public Use
  Company Number: SG-MYLANLABS-2012S1002475

PATIENT
  Age: 84 Year
  Sex: Male

DRUGS (5)
  1. CEFTRIAXONE [Suspect]
     Route: 065
  2. ALFUZOSIN HCL [Suspect]
     Route: 065
  3. METRONIDAZOLE [Suspect]
     Route: 065
  4. AMOXICILLIN AND CLAVULANATE POTASSIUM [Suspect]
     Route: 065
  5. OMEPRAZOLE [Suspect]
     Route: 065

REACTIONS (1)
  - STEVENS-JOHNSON SYNDROME [None]
